FAERS Safety Report 16265112 (Version 1)
Quarter: 2019Q2

REPORT INFORMATION
  Report Type: Report from Study
  Country: US (occurrence: US)
  Receive Date: 20190502
  Receipt Date: 20190502
  Transmission Date: 20190711
  Serious: No
  Sender: FDA-Public Use
  Company Number: US-RETROPHIN, INC.-2018RTN00024

PATIENT
  Sex: Female

DRUGS (1)
  1. CHOLBAM [Suspect]
     Active Substance: CHOLIC ACID
     Indication: INBORN ERROR OF LIPID METABOLISM
     Dosage: 50 MG, 2X/DAY
     Dates: start: 20170817

REACTIONS (1)
  - Alopecia [Not Recovered/Not Resolved]
